FAERS Safety Report 6371619-6 (Version None)
Quarter: 2009Q3

REPORT INFORMATION
  Report Type: 
  Country: None (occurrence: None)
  Receive Date: 20090923
  Receipt Date: 20080804
  Transmission Date: 20100115
  Serious: No
  Sender: FDA-Public Use
  Company Number: US-ASTRAZENECA-2008UW05825

PATIENT
  Age: 49 Year
  Sex: Female
  Weight: 86.2 kg

DRUGS (6)
  1. SEROQUEL [Suspect]
     Indication: POST-TRAUMATIC STRESS DISORDER
     Route: 048
     Dates: start: 20031023, end: 20050328
  2. SEROQUEL [Suspect]
     Indication: DEPRESSION
     Route: 048
     Dates: start: 20031023, end: 20050328
  3. LEXAPRO [Concomitant]
     Dates: start: 20030101
  4. CYMBALTA [Concomitant]
     Dates: start: 20060101
  5. HYDROXYZINE [Concomitant]
     Dates: start: 20070101
  6. BEXTRA [Concomitant]

REACTIONS (6)
  - BACK PAIN [None]
  - FIBROMYALGIA [None]
  - HYPOGLYCAEMIA [None]
  - SARCOIDOSIS [None]
  - TYPE 2 DIABETES MELLITUS [None]
  - VIRAL INFECTION [None]
